FAERS Safety Report 26024168 (Version 1)
Quarter: 2025Q4

REPORT INFORMATION
  Report Type: Spontaneous
  Country: CN (occurrence: CN)
  Receive Date: 20251111
  Receipt Date: 20251111
  Transmission Date: 20260117
  Serious: Yes (Hospitalization, Other)
  Sender: ROCHE
  Company Number: CN-ROCHE-10000423506

PATIENT
  Age: 67 Year
  Sex: Female

DRUGS (1)
  1. TRASTUZUMAB [Suspect]
     Active Substance: TRASTUZUMAB
     Indication: Breast cancer
     Route: 042
     Dates: start: 20250903, end: 20250903

REACTIONS (8)
  - Liver injury [Unknown]
  - Heart rate increased [Unknown]
  - Vomiting [Unknown]
  - Asthenia [Unknown]
  - Emphysema [Unknown]
  - Nephrolithiasis [Unknown]
  - Thyroid mass [Unknown]
  - Latent syphilis [Unknown]

NARRATIVE: CASE EVENT DATE: 20250915
